FAERS Safety Report 21859334 (Version 1)
Quarter: 2023Q1

REPORT INFORMATION
  Report Type: Spontaneous
  Country: US (occurrence: None)
  Receive Date: 20230112
  Receipt Date: 20230112
  Transmission Date: 20230417
  Serious: Yes (Disabling)
  Sender: FDA-Public Use
  Company Number: None

PATIENT
  Age: 56 Year
  Sex: Male
  Weight: 99 kg

DRUGS (1)
  1. INVOKANA [Suspect]
     Active Substance: CANAGLIFLOZIN
     Indication: Type 2 diabetes mellitus
     Route: 048
     Dates: start: 20180101, end: 20230111

REACTIONS (7)
  - Skin papilloma [None]
  - Urinary tract infection [None]
  - Migraine [None]
  - Disturbance in attention [None]
  - Apathy [None]
  - Loss of personal independence in daily activities [None]
  - Dizziness [None]

NARRATIVE: CASE EVENT DATE: 20220613
